FAERS Safety Report 13496039 (Version 4)
Quarter: 2017Q3

REPORT INFORMATION
  Report Type: Spontaneous
  Country: CH (occurrence: CH)
  Receive Date: 20170428
  Receipt Date: 20170706
  Transmission Date: 20171127
  Serious: Yes (Death, Other)
  Sender: FDA-Public Use
  Company Number: CH-GLAXOSMITHKLINE-CH2017060105

PATIENT
  Sex: Male

DRUGS (20)
  1. CETUXIMAB. [Suspect]
     Active Substance: CETUXIMAB
     Dosage: UNK , UNK
     Route: 040
     Dates: start: 20170601
  2. ALOXI [Suspect]
     Active Substance: PALONOSETRON HYDROCHLORIDE
     Indication: PRODUCT USED FOR UNKNOWN INDICATION
     Dosage: 0.25 MG, UNK
     Route: 040
     Dates: start: 20170601, end: 20170601
  3. CETIRIZIN [Interacting]
     Active Substance: CETIRIZINE HYDROCHLORIDE
     Indication: PRODUCT USED FOR UNKNOWN INDICATION
     Dosage: 10 MG, UNK
     Route: 048
     Dates: start: 20170111, end: 20170111
  4. SERESTA [Interacting]
     Active Substance: OXAZEPAM
     Dosage: 30 MG, TID
     Route: 048
     Dates: start: 201701, end: 201701
  5. CARBOPLATINE [Suspect]
     Active Substance: CARBOPLATIN
     Dosage: UNK,
     Route: 040
     Dates: start: 20170601
  6. MST [Suspect]
     Active Substance: MORPHINE SULFATE\NALTREXONE HYDROCHLORIDE
     Indication: PRODUCT USED FOR UNKNOWN INDICATION
     Dosage: 20 MG, TID
     Route: 048
     Dates: start: 201705
  7. MST [Suspect]
     Active Substance: MORPHINE SULFATE\NALTREXONE HYDROCHLORIDE
     Dosage: 40 MG, TID
     Route: 065
     Dates: start: 20170531
  8. DAFALGAN [Concomitant]
     Active Substance: ACETAMINOPHEN
     Indication: PRODUCT USED FOR UNKNOWN INDICATION
     Dosage: 1 G, QID
     Dates: start: 201701
  9. SERESTA [Interacting]
     Active Substance: OXAZEPAM
     Indication: PRODUCT USED FOR UNKNOWN INDICATION
     Dosage: 15 MG, TID
     Route: 048
     Dates: start: 201701
  10. SOLU-MEDROL [Suspect]
     Active Substance: METHYLPREDNISOLONE SODIUM SUCCINATE
     Indication: PRODUCT USED FOR UNKNOWN INDICATION
     Dosage: 120 MG, UNK
     Route: 040
     Dates: start: 20170601, end: 20170601
  11. VI-DE 3 [Concomitant]
     Active Substance: CHOLECALCIFEROL
     Indication: PRODUCT USED FOR UNKNOWN INDICATION
     Dosage: 800 IU, QD, 1 DROP
     Route: 048
  12. BECOZYM [Concomitant]
     Active Substance: VITAMINS
     Indication: PRODUCT USED FOR UNKNOWN INDICATION
     Dosage: 1 DF, QD
     Route: 048
  13. METHADONE [Interacting]
     Active Substance: METHADONE HYDROCHLORIDE
     Indication: PRODUCT USED FOR UNKNOWN INDICATION
     Dosage: 60 MG, QD
     Route: 050
  14. CETUXIMAB. [Suspect]
     Active Substance: CETUXIMAB
     Indication: PRODUCT USED FOR UNKNOWN INDICATION
     Dosage: 792 MG, UNK
     Route: 040
     Dates: start: 20170413, end: 20170413
  15. TAVEGYL [Suspect]
     Active Substance: CLEMASTINE FUMARATE
     Indication: PRODUCT USED FOR UNKNOWN INDICATION
     Dosage: 1 DF, UNK
     Route: 065
     Dates: start: 201612, end: 201612
  16. METHADONE [Interacting]
     Active Substance: METHADONE HYDROCHLORIDE
     Dosage: 60 MG, QD
     Route: 050
  17. TRAMADOL. [Concomitant]
     Active Substance: TRAMADOL
     Indication: PRODUCT USED FOR UNKNOWN INDICATION
     Dosage: UNK
     Route: 065
     Dates: end: 201705
  18. CARBOPLATINE [Suspect]
     Active Substance: CARBOPLATIN
     Indication: PRODUCT USED FOR UNKNOWN INDICATION
     Dosage: 235 MG, UNK,1
     Route: 040
     Dates: start: 20170413, end: 20170413
  19. FLUOROURACIL. [Concomitant]
     Active Substance: FLUOROURACIL
     Indication: PRODUCT USED FOR UNKNOWN INDICATION
     Dosage: 6336 MG, UNK
     Route: 065
     Dates: start: 20170413, end: 20170413
  20. BENERVA [Concomitant]
     Active Substance: THIAMINE
     Indication: PRODUCT USED FOR UNKNOWN INDICATION
     Dosage: 1 DF, QD
     Route: 048

REACTIONS (12)
  - Hepatocellular injury [Fatal]
  - Altered state of consciousness [Fatal]
  - Bradypnoea [Recovered/Resolved]
  - Bradypnoea [Recovered/Resolved]
  - Bradypnoea [Recovered/Resolved]
  - Altered state of consciousness [Recovered/Resolved]
  - Drug interaction [Unknown]
  - Clonus [Recovered/Resolved]
  - Respiratory failure [Recovered/Resolved]
  - Altered state of consciousness [Recovered/Resolved]
  - Altered state of consciousness [Recovered/Resolved]
  - Altered state of consciousness [Recovered/Resolved]

NARRATIVE: CASE EVENT DATE: 2017
